FAERS Safety Report 21489273 (Version 1)
Quarter: 2022Q4

REPORT INFORMATION
  Report Type: Other
  Country: CA (occurrence: CA)
  Receive Date: 20221021
  Receipt Date: 20221021
  Transmission Date: 20230113
  Serious: Yes (Hospitalization)
  Sender: FDA-Public Use
  Company Number: CA-CELLTRION INC.-2022CA016534

PATIENT

DRUGS (13)
  1. TRUXIMA [Suspect]
     Active Substance: RITUXIMAB-ABBS
     Indication: Vasculitis
     Dosage: 700.0 MILLIGRAM
     Route: 042
  2. APIXABAN [Concomitant]
     Active Substance: APIXABAN
  3. CALCIUM CARBONATE [Concomitant]
     Active Substance: CALCIUM CARBONATE
  4. CEPHRADINE [Concomitant]
     Active Substance: CEPHRADINE
  5. CLARITHROMYCIN [Concomitant]
     Active Substance: CLARITHROMYCIN
  6. OLODATEROL HYDROCHLORIDE\TIOTROPIUM BROMIDE MONOHYDRATE [Concomitant]
     Active Substance: OLODATEROL HYDROCHLORIDE\TIOTROPIUM BROMIDE MONOHYDRATE
  7. INSULIN HUMAN [Concomitant]
     Active Substance: INSULIN HUMAN
  8. LINAGLIPTIN [Concomitant]
     Active Substance: LINAGLIPTIN
  9. PANTOPRAZOLE SODIUM [Concomitant]
     Active Substance: PANTOPRAZOLE SODIUM
  10. PREDNISONE [Concomitant]
     Active Substance: PREDNISONE
  11. ROSUVASTATIN [Concomitant]
     Active Substance: ROSUVASTATIN
     Route: 058
  12. VENTOLIN [Concomitant]
     Active Substance: ALBUTEROL SULFATE
  13. VIT D [VITAMIN D NOS] [Concomitant]

REACTIONS (5)
  - Renal disorder [Unknown]
  - Dyspnoea [Unknown]
  - Intentional dose omission [Unknown]
  - Product availability issue [Unknown]
  - Product dose omission issue [Unknown]
